FAERS Safety Report 14224036 (Version 1)
Quarter: 2017Q4

REPORT INFORMATION
  Report Type: Spontaneous
  Country: US (occurrence: US)
  Receive Date: 20171123
  Receipt Date: 20171123
  Transmission Date: 20180321
  Serious: Yes (Life-Threatening, Disabling, Other)
  Sender: FDA-Public Use
  Company Number: None

PATIENT
  Age: 42 Year
  Sex: Female
  Weight: 62.1 kg

DRUGS (22)
  1. IMODIUM [Concomitant]
     Active Substance: LOPERAMIDE HYDROCHLORIDE
  2. AMLODIPINE BESYLATE. [Concomitant]
     Active Substance: AMLODIPINE BESYLATE
  3. ZYRTEC [Concomitant]
     Active Substance: CETIRIZINE HYDROCHLORIDE
  4. BENADRYL [Concomitant]
     Active Substance: DIPHENHYDRAMINE HYDROCHLORIDE
  5. ZOLPIDEM TARTRATE 10 MG [Suspect]
     Active Substance: ZOLPIDEM TARTRATE
     Indication: INSOMNIA
     Dosage: ?          QUANTITY:1 TABLET(S);?
     Route: 048
     Dates: start: 20130222, end: 20171121
  6. TRAMADOL. [Concomitant]
     Active Substance: TRAMADOL
  7. MONTELUKAST SOD [Concomitant]
     Active Substance: MONTELUKAST SODIUM
  8. TYLENOL [Concomitant]
     Active Substance: ACETAMINOPHEN
  9. LEVOTHYROXINE. [Concomitant]
     Active Substance: LEVOTHYROXINE
  10. METAXALONE. [Concomitant]
     Active Substance: METAXALONE
  11. ALPRAZOLAM. [Concomitant]
     Active Substance: ALPRAZOLAM
  12. BELSOMRA [Concomitant]
     Active Substance: SUVOREXANT
  13. LO LOESTRIN FE [Concomitant]
     Active Substance: ETHINYL ESTRADIOL\NORETHINDRONE ACETATE
  14. RIZATRIPTAN. [Concomitant]
     Active Substance: RIZATRIPTAN
  15. ONDANSETRON HCL [Concomitant]
     Active Substance: ONDANSETRON HYDROCHLORIDE
  16. TRIHEXYPHENIDYL [Concomitant]
     Active Substance: TRIHEXYPHENIDYL
  17. ZONISAMIDE. [Concomitant]
     Active Substance: ZONISAMIDE
  18. LOSARTAN POTASSIUM. [Concomitant]
     Active Substance: LOSARTAN POTASSIUM
  19. CLONIDINE HCL [Concomitant]
     Active Substance: CLONIDINE HYDROCHLORIDE
  20. HYOSCYAMINE SULF [Concomitant]
     Active Substance: HYOSCYAMINE SULFATE
  21. DULERA [Concomitant]
     Active Substance: FORMOTEROL FUMARATE DIHYDRATE\MOMETASONE FUROATE
  22. GUAIFENESIN. [Concomitant]
     Active Substance: GUAIFENESIN

REACTIONS (5)
  - Head injury [None]
  - Fall [None]
  - Contusion [None]
  - Muscle strain [None]
  - Amnesia [None]

NARRATIVE: CASE EVENT DATE: 20171116
